FAERS Safety Report 5116194-9 (Version None)
Quarter: 2006Q3

REPORT INFORMATION
  Report Type: 
  Country: None (occurrence: None)
  Receive Date: 20060927
  Receipt Date: 20060728
  Transmission Date: 20061208
  Serious: No
  Sender: FDA-Public Use
  Company Number: US-BRISTOL-MYERS SQUIBB COMPANY-13459664

PATIENT
  Sex: Male
  Weight: 147 kg

DRUGS (2)
  1. DEFINITY [Suspect]
     Indication: DYSPNOEA
     Route: 042
  2. DEFINITY [Suspect]
     Route: 042

REACTIONS (4)
  - ANXIETY [None]
  - BACK PAIN [None]
  - HYPERHIDROSIS [None]
  - VISUAL DISTURBANCE [None]
